FAERS Safety Report 19072606 (Version 2)
Quarter: 2021Q4

REPORT INFORMATION
  Report Type: Other
  Country: GB (occurrence: GB)
  Receive Date: 20210330
  Receipt Date: 20211110
  Transmission Date: 20220303
  Serious: Yes (Other)
  Sender: FDA-Public Use
  Company Number: None

PATIENT
  Age: 44 Year
  Sex: Male
  Weight: 77 kg

DRUGS (2)
  1. SERTRALINE HYDROCHLORIDE [Suspect]
     Active Substance: SERTRALINE HYDROCHLORIDE
     Indication: Product used for unknown indication
     Dosage: 50 MILLIGRAM (ONE TO BE TAKEN EACH DAY)
     Route: 048
     Dates: start: 20210301, end: 20210315
  2. PROPRANOLOL [Concomitant]
     Active Substance: PROPRANOLOL HYDROCHLORIDE
     Indication: Product used for unknown indication
     Dosage: 1 DOSAGE FORM (ONE TABLET UP TO THREE TIMES A DAY)
     Route: 065
     Dates: start: 20210301

REACTIONS (1)
  - Violence-related symptom [Recovered/Resolved]

NARRATIVE: CASE EVENT DATE: 20210301
